FAERS Safety Report 26093564 (Version 1)
Quarter: 2025Q4

REPORT INFORMATION
  Report Type: Report from Study
  Country: GB (occurrence: GB)
  Receive Date: 20251126
  Receipt Date: 20251126
  Transmission Date: 20260118
  Serious: Yes (Other)
  Sender: NOVARTIS
  Company Number: GB-002147023-NVSC2024GB233712

PATIENT
  Sex: Female

DRUGS (8)
  1. COSENTYX [Suspect]
     Active Substance: SECUKINUMAB
     Indication: Ankylosing spondylitis
     Dosage: 300 MG, OTHER (INJECT 300MG (TWO SYRINGES) SUBCUTANEOUSLY ONCE MONTHLY, ALTERNATING WITH 150MG (ONE
     Route: 058
     Dates: start: 2020
  2. COSENTYX [Suspect]
     Active Substance: SECUKINUMAB
     Dosage: 300 MG, QMO
     Route: 058
     Dates: start: 20210215
  3. COSENTYX [Suspect]
     Active Substance: SECUKINUMAB
     Dosage: UNK, OTHER (300/150 MG, ONE MONTH ALTERNATING BETWEEN 150 AND 300 MG)
     Route: 058
     Dates: start: 20221205
  4. COSENTYX [Suspect]
     Active Substance: SECUKINUMAB
     Dosage: UNK
     Route: 065
     Dates: start: 20250101
  5. ETORICOXIB [Concomitant]
     Active Substance: ETORICOXIB
     Indication: Product used for unknown indication
     Dosage: 60 MG, PRN (TAKEN WHEN NEEDED)
     Route: 065
  6. CODEINE [Concomitant]
     Active Substance: CODEINE
     Indication: Product used for unknown indication
     Dosage: 15 MG, PRN (TAKEN WHEN NEEDED)
     Route: 065
  7. ACYCLOVIR [Concomitant]
     Active Substance: ACYCLOVIR
     Indication: Product used for unknown indication
     Dosage: 400 MG, PRN (TAKEN WHEN NEEDED)
     Route: 065
  8. ACETAMINOPHEN [Concomitant]
     Active Substance: ACETAMINOPHEN
     Indication: Product used for unknown indication
     Dosage: UNK, PRN (TAKES WHEN NEEDED)
     Route: 065

REACTIONS (11)
  - Ankylosing spondylitis [Unknown]
  - Pain [Unknown]
  - Inflammation [Unknown]
  - Circumstance or information capable of leading to medication error [Unknown]
  - Nasopharyngitis [Unknown]
  - Cough [Unknown]
  - Oral herpes [Unknown]
  - Lip swelling [Unknown]
  - Blister [Unknown]
  - Malaise [Unknown]
  - Off label use [Unknown]
